FAERS Safety Report 24354425 (Version 1)
Quarter: 2024Q3

REPORT INFORMATION
  Report Type: Spontaneous
  Country: AE (occurrence: AE)
  Receive Date: 20240923
  Receipt Date: 20240923
  Transmission Date: 20241016
  Serious: Yes (Other)
  Sender: PFIZER
  Company Number: AE-PFIZER INC-PV202400122805

PATIENT
  Age: 48 Year
  Sex: Female

DRUGS (2)
  1. VOXELOTOR [Suspect]
     Active Substance: VOXELOTOR
     Dosage: 1500 MG
     Dates: start: 2024
  2. VOXELOTOR [Suspect]
     Active Substance: VOXELOTOR
     Dosage: 1500 MG
     Dates: start: 2024

REACTIONS (2)
  - Haemoglobin decreased [Unknown]
  - Viral infection [Unknown]

NARRATIVE: CASE EVENT DATE: 20240101
